FAERS Safety Report 11466116 (Version 1)
Quarter: 2015Q3

REPORT INFORMATION
  Report Type: Spontaneous
  Country: US (occurrence: US)
  Receive Date: 20150907
  Receipt Date: 20150907
  Transmission Date: 20151125
  Serious: Yes (Other)
  Sender: FDA-Public Use
  Company Number: US-TAKEDA-2014TUS010727

PATIENT

DRUGS (7)
  1. DIABETA                            /00145301/ [Concomitant]
     Dosage: 5-10 MG, UNK
     Dates: start: 2010, end: 2011
  2. ACTOS [Suspect]
     Active Substance: PIOGLITAZONE HYDROCHLORIDE
     Indication: TYPE 2 DIABETES MELLITUS
     Dosage: 30 MG, UNK
     Route: 048
     Dates: start: 2010, end: 2011
  3. JANUVIA [Concomitant]
     Active Substance: SITAGLIPTIN PHOSPHATE
     Dosage: 100 MG, UNK
     Dates: start: 2014
  4. METFORMIN [Concomitant]
     Active Substance: METFORMIN HYDROCHLORIDE
     Dosage: 500-1000 MG, UNK
     Dates: start: 2010, end: 2014
  5. GLYBURIDE/METFORMIN [Concomitant]
     Active Substance: GLYBURIDE\METFORMIN
     Indication: DIABETES MELLITUS
     Dosage: 5-500 MG, UNK
     Dates: start: 2010, end: 2011
  6. GLUCOTROL [Concomitant]
     Active Substance: GLIPIZIDE
     Dosage: UNK
     Dates: start: 2011, end: 2012
  7. AMARYL [Concomitant]
     Active Substance: GLIMEPIRIDE
     Dosage: 4 MG, UNK
     Dates: start: 2014

REACTIONS (1)
  - Bladder cancer [Unknown]

NARRATIVE: CASE EVENT DATE: 201105
